FAERS Safety Report 6169938-1 (Version None)
Quarter: 2009Q2

REPORT INFORMATION
  Report Type: 
  Country: None (occurrence: None)
  Receive Date: 20090428
  Receipt Date: 20090416
  Transmission Date: 20091009
  Serious: Yes (Other)
  Sender: FDA-Public Use
  Company Number: GB-PFIZER INC-2009199737

PATIENT

DRUGS (1)
  1. SOLU-MEDRONE [Suspect]
     Indication: MULTIPLE SCLEROSIS
     Dosage: 500 MG, UNK
     Dates: start: 20090326

REACTIONS (2)
  - ANAPHYLACTIC REACTION [None]
  - ANGIOEDEMA [None]
